FAERS Safety Report 15049341 (Version 1)
Quarter: 2018Q2

REPORT INFORMATION
  Report Type: Spontaneous
  Country: US (occurrence: US)
  Receive Date: 20180622
  Receipt Date: 20180622
  Transmission Date: 20180711
  Serious: No
  Sender: FDA-Public Use
  Company Number: US-BAYER-2018-112941

PATIENT
  Age: 48 Year
  Sex: Male
  Weight: 81.63 kg

DRUGS (1)
  1. ALEVE [Suspect]
     Active Substance: NAPROXEN SODIUM
     Indication: BACK PAIN
     Dosage: 2 DF, UNK
     Route: 048

REACTIONS (2)
  - Product use issue [Unknown]
  - Erectile dysfunction [Not Recovered/Not Resolved]
